FAERS Safety Report 8930378 (Version 1)
Quarter: 2012Q4

REPORT INFORMATION
  Report Type: 
  Country: FR (occurrence: FR)
  Receive Date: 20121128
  Receipt Date: 20121128
  Transmission Date: 20130627
  Serious: Yes (Hospitalization)
  Sender: FDA-Public Use
  Company Number: FR-GLAXOSMITHKLINE-B0846425A

PATIENT
  Age: 83 Year
  Sex: Female

DRUGS (5)
  1. CLAMOXYL IV [Suspect]
     Indication: ERYSIPELAS
     Route: 042
     Dates: start: 20120807, end: 20120809
  2. ARIXTRA [Suspect]
     Indication: ERYSIPELAS
     Route: 058
     Dates: start: 20120807, end: 20120808
  3. PYOSTACINE [Suspect]
     Indication: ERYSIPELAS
     Route: 048
     Dates: start: 20120809, end: 20120810
  4. TRIMEBUTINE [Suspect]
     Route: 048
     Dates: start: 20120808, end: 20120813
  5. LOVENOX [Suspect]
     Indication: ERYSIPELAS
     Route: 058
     Dates: start: 20120809

REACTIONS (1)
  - Toxic skin eruption [Unknown]
